FAERS Safety Report 14786181 (Version 2)
Quarter: 2018Q2

REPORT INFORMATION
  Report Type: Spontaneous
  Country: US (occurrence: US)
  Receive Date: 20180420
  Receipt Date: 20180608
  Transmission Date: 20180711
  Serious: Yes (Hospitalization, Other)
  Sender: FDA-Public Use
  Company Number: US-VALIDUS PHARMACEUTICALS LLC-US-2018VAL000673

PATIENT
  Age: 61 Year
  Sex: Female

DRUGS (3)
  1. QUETIAPINE FUMARATE. [Suspect]
     Active Substance: QUETIAPINE FUMARATE
     Indication: SCHIZOAFFECTIVE DISORDER
     Dosage: UNK
     Route: 065
  2. LITHIUM. [Suspect]
     Active Substance: LITHIUM
     Indication: SCHIZOAFFECTIVE DISORDER
     Dosage: UNK
     Route: 065
  3. DESIPRAMINE HYDROCHLORIDE. [Suspect]
     Active Substance: DESIPRAMINE HYDROCHLORIDE
     Indication: SCHIZOAFFECTIVE DISORDER
     Dosage: UNK
     Route: 065

REACTIONS (18)
  - Urinary retention [Unknown]
  - Posterior reversible encephalopathy syndrome [Unknown]
  - Hallucination, auditory [Unknown]
  - Acute kidney injury [Recovered/Resolved]
  - Grimacing [Unknown]
  - Posturing [Recovering/Resolving]
  - Intestinal obstruction [Recovered/Resolved]
  - Hypertension [Recovered/Resolved]
  - Ileus [Unknown]
  - Mutism [Recovering/Resolving]
  - Confusional state [Recovering/Resolving]
  - Asthenia [Unknown]
  - Agitation [Recovering/Resolving]
  - Tachycardia [Recovered/Resolved]
  - Catatonia [Recovered/Resolved]
  - Seizure [Recovering/Resolving]
  - Autonomic nervous system imbalance [Not Recovered/Not Resolved]
  - Pyrexia [Unknown]
